FAERS Safety Report 4567510-8 (Version None)
Quarter: 2005Q1

REPORT INFORMATION
  Report Type: 
  Country: None (occurrence: None)
  Receive Date: 20050201
  Receipt Date: 20030130
  Transmission Date: 20050727
  Serious: Yes (Death, Hospitalization, Other)
  Sender: FDA-Public Use
  Company Number: US-MERCK-0302USA00114

PATIENT
  Age: 74 Year
  Sex: Male
  Weight: 89 kg

DRUGS (8)
  1. PRINIVIL [Concomitant]
     Route: 048
  2. ATENOLOL [Concomitant]
     Indication: HYPERTENSION
     Route: 065
     Dates: end: 20011116
  3. [THERAPY UNSPECIFIED] [Concomitant]
     Route: 065
  4. PLAVIX [Concomitant]
     Indication: CEREBROVASCULAR ACCIDENT
     Route: 065
     Dates: start: 19990219
  5. ZOCOR [Concomitant]
     Indication: BLOOD CHOLESTEROL INCREASED
     Route: 065
     Dates: start: 20010106
  6. CELEBREX [Concomitant]
     Route: 065
     Dates: start: 19990401
  7. VIOXX [Suspect]
     Indication: OSTEOARTHRITIS
     Route: 048
     Dates: start: 19990930, end: 20011001
  8. ASPIRIN [Concomitant]
     Route: 065
     Dates: end: 20011101

REACTIONS (36)
  - ACUTE MYOCARDIAL INFARCTION [None]
  - ADVERSE EVENT [None]
  - ANGINA UNSTABLE [None]
  - ANXIETY [None]
  - AORTIC ANEURYSM [None]
  - ATHEROSCLEROSIS [None]
  - ATRIAL FIBRILLATION [None]
  - BACK PAIN [None]
  - BLOOD POTASSIUM DECREASED [None]
  - BLOOD TRIGLYCERIDES INCREASED [None]
  - CARDIAC FAILURE CONGESTIVE [None]
  - CARDIAC VALVE DISEASE [None]
  - CHOLELITHIASIS [None]
  - DEPRESSION [None]
  - DISSEMINATED INTRAVASCULAR COAGULATION [None]
  - DIVERTICULUM [None]
  - EMBOLIC STROKE [None]
  - ENCEPHALOPATHY [None]
  - ENDOCARDITIS [None]
  - FEELING HOT [None]
  - HAEMATURIA [None]
  - HAEMORRHAGE [None]
  - HEPATIC CYST [None]
  - HIGH DENSITY LIPOPROTEIN DECREASED [None]
  - ISCHAEMIC CARDIOMYOPATHY [None]
  - LOW DENSITY LIPOPROTEIN INCREASED [None]
  - MYOCARDIAL INFARCTION [None]
  - NEPHROSCLEROSIS [None]
  - OEDEMA PERIPHERAL [None]
  - RENAL MASS [None]
  - SINUS BRADYCARDIA [None]
  - SINUS TACHYCARDIA [None]
  - SPLENIC INFARCTION [None]
  - STRESS [None]
  - VENTRICULAR TACHYCARDIA [None]
  - VISION BLURRED [None]
